FAERS Safety Report 11429011 (Version 1)
Quarter: 2015Q3

REPORT INFORMATION
  Report Type: Spontaneous
  Country: US (occurrence: US)
  Receive Date: 20150828
  Receipt Date: 20150828
  Transmission Date: 20151125
  Serious: No
  Sender: FDA-Public Use
  Company Number: US-ROCHE-1158036

PATIENT
  Sex: Male

DRUGS (3)
  1. COPEGUS [Suspect]
     Active Substance: RIBAVIRIN
     Indication: CHRONIC HEPATITIS C
     Dosage: DAILY IN DIVIDED DOSE 400/400
     Route: 048
     Dates: start: 20121108, end: 20130424
  2. COPEGUS [Suspect]
     Active Substance: RIBAVIRIN
     Dosage: DAILY IN DIVIDED DOSE 600/600
     Route: 048
  3. PEGASYS [Suspect]
     Active Substance: PEGINTERFERON ALFA-2A
     Indication: CHRONIC HEPATITIS C
     Route: 058
     Dates: start: 20121108, end: 20130418

REACTIONS (10)
  - Vertigo [Unknown]
  - Face oedema [Unknown]
  - Drug prescribing error [Unknown]
  - Swelling face [Unknown]
  - White blood cell count decreased [Unknown]
  - Fatigue [Unknown]
  - Drug dose omission [Unknown]
  - Oropharyngeal pain [Unknown]
  - Dizziness [Recovered/Resolved]
  - Dyspnoea [Unknown]
